FAERS Safety Report 17135337 (Version 4)
Quarter: 2023Q2

REPORT INFORMATION
  Report Type: Spontaneous
  Country: US (occurrence: US)
  Receive Date: 20191210
  Receipt Date: 20230627
  Transmission Date: 20230721
  Serious: No
  Sender: FDA-Public Use
  Company Number: US-PFIZER INC-2019425968

PATIENT
  Age: 64 Year
  Sex: Female
  Weight: 66 kg

DRUGS (8)
  1. IBRANCE [Suspect]
     Active Substance: PALBOCICLIB
     Indication: Breast cancer female
     Dosage: 125 MG, CYCLIC, [125 MG EVERY DAY FOR THREE WEEKS AND ONE WEEK OFF]
     Dates: start: 201903, end: 2019
  2. IBRANCE [Suspect]
     Active Substance: PALBOCICLIB
     Dosage: 100 MG, CYCLIC [3 WEEKS ON AND 1 WEEK OFF; REPEAT EVERY 4]
     Route: 048
  3. IBRANCE [Suspect]
     Active Substance: PALBOCICLIB
     Dosage: 125 MG
  4. LAMOTRIGINE [Concomitant]
     Active Substance: LAMOTRIGINE
     Indication: Seizure
     Dosage: 450 MG, DAILY (TWO TABLETS IN THE MORNING AND ONE IN THE EVENING)
  5. GABAPENTIN [Concomitant]
     Active Substance: GABAPENTIN
     Indication: Night sweats
     Dosage: 300 MG, 1X/DAY (AT BEDTIME)
  6. TRAZODONE [Concomitant]
     Active Substance: TRAZODONE HYDROCHLORIDE
     Indication: Insomnia
     Dosage: 75 MG, 1X/DAY (50 MG ONE AND A HALF AT BEDTIME)
  7. EXEMESTANE [Concomitant]
     Active Substance: EXEMESTANE
     Indication: Blood growth hormone
     Dosage: 25 MG, 1X/DAY
  8. LETROZOLE [Concomitant]
     Active Substance: LETROZOLE
     Dosage: UNK

REACTIONS (4)
  - Full blood count abnormal [Unknown]
  - White blood cell count decreased [Unknown]
  - Red blood cell count decreased [Unknown]
  - Alopecia [Unknown]

NARRATIVE: CASE EVENT DATE: 20190101
